FAERS Safety Report 5239332-6 (Version None)
Quarter: 2007Q1

REPORT INFORMATION
  Report Type: 
  Country: None (occurrence: None)
  Receive Date: 20070213
  Receipt Date: 20070213
  Transmission Date: 20070707
  Serious: Yes (Hospitalization)
  Sender: FDA-Public Use
  Company Number: None

PATIENT
  Age: 53 Year
  Sex: Male
  Weight: 78.4723 kg

DRUGS (13)
  1. WARFARIN SODIUM [Suspect]
     Indication: CARDIOMYOPATHY
     Dosage: 5 MG DAILY PO
     Route: 048
     Dates: start: 20060901, end: 20070212
  2. PROMETHAZINE [Concomitant]
  3. SENNOSIDES [Concomitant]
  4. TEMAZEPAM [Concomitant]
  5. FERROUS SULATE [Concomitant]
  6. METOLAZONE [Concomitant]
  7. SIMVASTATIN [Concomitant]
  8. TRAZODONE HCL [Concomitant]
  9. METOPROLOL SUCCINATE [Concomitant]
  10. DIGOXIN [Concomitant]
  11. CAPTOPRIL [Concomitant]
  12. FUROSEMIDE [Concomitant]
  13. POTASSIUM CHLORIDE [Concomitant]

REACTIONS (1)
  - DRUG TOXICITY [None]
